FAERS Safety Report 11120290 (Version 1)
Quarter: 2015Q2

REPORT INFORMATION
  Report Type: Spontaneous
  Country: CA (occurrence: CA)
  Receive Date: 20150518
  Receipt Date: 20150518
  Transmission Date: 20150821
  Serious: Yes (Other)
  Sender: FDA-Public Use
  Company Number: CA-ACTELION-A-US2015-117859

PATIENT
  Age: 65 Year
  Sex: Female

DRUGS (9)
  1. OPSUMIT [Suspect]
     Active Substance: MACITENTAN
     Indication: PULMONARY ARTERIAL HYPERTENSION
     Route: 048
  2. DILTIAZEM [Concomitant]
     Active Substance: DILTIAZEM
  3. SYNTHROID [Concomitant]
     Active Substance: LEVOTHYROXINE SODIUM
  4. BIOTIN [Concomitant]
     Active Substance: BIOTIN
  5. METAMUCIL [Concomitant]
     Active Substance: PLANTAGO SEED
  6. ASPIRIN. [Concomitant]
     Active Substance: ASPIRIN
     Dosage: 81 MG, UNK
  7. FUROSEMIDE. [Concomitant]
     Active Substance: FUROSEMIDE
  8. CARIPUL [Suspect]
     Active Substance: EPOPROSTENOL
     Indication: PULMONARY ARTERIAL HYPERTENSION
     Dosage: 30000 NG, CONT INFUS
     Route: 042
     Dates: start: 20150302
  9. ATORVASTATIN [Concomitant]
     Active Substance: ATORVASTATIN

REACTIONS (3)
  - Catheter site erythema [Not Recovered/Not Resolved]
  - Catheter site discharge [Not Recovered/Not Resolved]
  - Catheter site hypersensitivity [Not Recovered/Not Resolved]
